FAERS Safety Report 9071750 (Version 1)
Quarter: 2013Q1

REPORT INFORMATION
  Report Type: Report from Study
  Country: US (occurrence: US)
  Receive Date: 20130129
  Receipt Date: 20130129
  Transmission Date: 20140127
  Serious: No
  Sender: FDA-Public Use
  Company Number: US-ABBOTT-12P-163-0934095-00

PATIENT
  Age: 49 Year
  Sex: Female

DRUGS (5)
  1. HUMIRA 40 MG/0.8 ML PEN [Suspect]
     Indication: CROHN^S DISEASE
     Dosage: LOADING DOSE
     Dates: start: 20120503
  2. PREDNISONE [Concomitant]
     Indication: PRODUCT USED FOR UNKNOWN INDICATION
     Dosage: 30MG DAILY, TAPERING OFF BY 5MG/WEEK
  3. AZATHIOPRINE [Concomitant]
     Indication: PRODUCT USED FOR UNKNOWN INDICATION
     Dosage: DAILY
     Route: 048
  4. ONDANSETRON HCL [Concomitant]
     Indication: NAUSEA
     Route: 048
  5. TRAMADOL [Concomitant]
     Indication: PAIN

REACTIONS (2)
  - Swelling face [Not Recovered/Not Resolved]
  - Oedema peripheral [Not Recovered/Not Resolved]
